FAERS Safety Report 4603845-8 (Version None)
Quarter: 2005Q1

REPORT INFORMATION
  Report Type: 
  Country: None (occurrence: None)
  Receive Date: 20050308
  Receipt Date: 20050224
  Transmission Date: 20050727
  Serious: Yes (Death, Hospitalization)
  Sender: FDA-Public Use
  Company Number: US-2004-036074

PATIENT
  Age: 61 Year
  Sex: Male

DRUGS (1)
  1. ULTRAVIST 300 [Suspect]
     Indication: COMPUTERISED TOMOGRAM ABDOMEN
     Dosage: 140 ML, 1 DOSE, INTRAVENOUS
     Route: 042
     Dates: start: 20041202, end: 20041202

REACTIONS (6)
  - BRAIN DEATH [None]
  - CARDIAC ARREST [None]
  - COMA [None]
  - FEELING HOT [None]
  - PULSE ABSENT [None]
  - RESPIRATORY ARREST [None]
